FAERS Safety Report 19161748 (Version 1)
Quarter: 2021Q2

REPORT INFORMATION
  Report Type: Spontaneous
  Country: US (occurrence: US)
  Receive Date: 20210420
  Receipt Date: 20210420
  Transmission Date: 20210717
  Serious: Yes (Other)
  Sender: FDA-Public Use
  Company Number: US-PURDUE-USA-2020-0194837

PATIENT
  Sex: Male

DRUGS (7)
  1. CATAPRES?TTS [Suspect]
     Active Substance: CLONIDINE
     Indication: LIMB INJURY
     Dosage: UNKNOWN
     Route: 065
  2. VICOPROFEN [Suspect]
     Active Substance: HYDROCODONE BITARTRATE\IBUPROFEN
     Indication: LIMB INJURY
     Dosage: 200/7.5
     Route: 065
  3. METHYLPREDNISOLONE. [Suspect]
     Active Substance: METHYLPREDNISOLONE
     Indication: LIMB INJURY
     Dosage: 40MG
     Route: 065
  4. HYDROCODONE BITARTRATE/ACETAMINOPHEN [Suspect]
     Active Substance: ACETAMINOPHEN\HYDROCODONE BITARTRATE
     Indication: LIMB INJURY
     Dosage: UNKNOWN
     Route: 048
  5. DIAZEPAM. [Suspect]
     Active Substance: DIAZEPAM
     Indication: LIMB INJURY
     Dosage: 5MG
     Route: 048
  6. CIPRO HC [Suspect]
     Active Substance: CIPROFLOXACIN HYDROCHLORIDE\HYDROCORTISONE
     Indication: LIMB INJURY
     Dosage: UNKNOWN
     Route: 065
  7. PROPOXYPHENE HYDROCHLORIDE AND ACETAMINOPHEN [Suspect]
     Active Substance: ACETAMINOPHEN\PROPOXYPHENE HYDROCHLORIDE
     Indication: LIMB INJURY
     Dosage: UNKNOWN
     Route: 065

REACTIONS (1)
  - Drug dependence [Unknown]
